FAERS Safety Report 5203694-6 (Version None)
Quarter: 2007Q1

REPORT INFORMATION
  Report Type: 
  Country: None (occurrence: None)
  Receive Date: 20070105
  Receipt Date: 20070105
  Transmission Date: 20070707
  Serious: Yes (Hospitalization, Other)
  Sender: FDA-Public Use
  Company Number: None

PATIENT
  Sex: Female
  Weight: 83.9154 kg

DRUGS (2)
  1. PHENYTOIN [Suspect]
     Indication: EPILEPSY
     Dosage: ONE CAPSULE 4 TIMES A DAY ORALLY
     Route: 048
     Dates: start: 20061212
  2. TOPAMAX [Concomitant]

REACTIONS (1)
  - CONVULSION [None]
